FAERS Safety Report 13389469 (Version 1)
Quarter: 2017Q1

REPORT INFORMATION
  Report Type: Report from Study
  Country: CA (occurrence: CA)
  Receive Date: 20170330
  Receipt Date: 20170330
  Transmission Date: 20170429
  Serious: Yes (Hospitalization)
  Sender: FDA-Public Use
  Company Number: CA-JNJFOC-20170325445

PATIENT
  Age: 31 Year
  Sex: Female

DRUGS (2)
  1. REMICADE [Suspect]
     Active Substance: INFLIXIMAB
     Indication: COLITIS ULCERATIVE
     Route: 042
     Dates: start: 20161020
  2. REMICADE [Suspect]
     Active Substance: INFLIXIMAB
     Indication: COLITIS ULCERATIVE
     Route: 042
     Dates: start: 20170323

REACTIONS (9)
  - Vulvovaginal erythema [Recovering/Resolving]
  - Frequent bowel movements [Unknown]
  - Purulent discharge [Recovering/Resolving]
  - Exposure during pregnancy [Not Recovered/Not Resolved]
  - Vulvovaginal pain [Recovering/Resolving]
  - Off label use [Unknown]
  - Product use issue [Unknown]
  - Vulvovaginal swelling [Recovering/Resolving]
  - Haematochezia [Unknown]

NARRATIVE: CASE EVENT DATE: 2016
